FAERS Safety Report 5042595-3 (Version None)
Quarter: 2006Q2

REPORT INFORMATION
  Report Type: 
  Country: None (occurrence: None)
  Receive Date: 20060623
  Receipt Date: 20060613
  Transmission Date: 20061013
  Serious: Yes (Hospitalization)
  Sender: FDA-Public Use
  Company Number: 200610572BFR

PATIENT
  Age: 67 Year
  Sex: Female

DRUGS (3)
  1. ASPIRIN [Suspect]
     Indication: PAIN IN EXTREMITY
     Dosage: ORAL
     Route: 048
     Dates: end: 20051229
  2. BREXIN (PIROXICAM [PIROXICAM]) [Suspect]
     Indication: PAIN IN EXTREMITY
     Dosage: 20 MG, TOTAL DAILY, ORAL
     Route: 048
     Dates: start: 20051212, end: 20051229
  3. MOPRAL [Concomitant]

REACTIONS (4)
  - ASTHENIA [None]
  - LEUKOERYTHROBLASTIC ANAEMIA [None]
  - MELAENA [None]
  - PALLOR [None]
